FAERS Safety Report 6028511-6 (Version None)
Quarter: 2009Q1

REPORT INFORMATION
  Report Type: 
  Country: None (occurrence: None)
  Receive Date: 20090106
  Receipt Date: 20081229
  Transmission Date: 20090719
  Serious: Yes (Hospitalization, Other)
  Sender: FDA-Public Use
  Company Number: US-ELI_LILLY_AND_COMPANY-US200812003162

PATIENT
  Age: 66 Year
  Sex: Female
  Weight: 68.934 kg

DRUGS (10)
  1. BYETTA [Suspect]
     Indication: TYPE 2 DIABETES MELLITUS
     Dosage: 5 UG, UNK
     Route: 058
     Dates: start: 20060210
  2. BYETTA [Suspect]
     Dosage: 10 UG, UNK
     Route: 058
  3. BYETTA [Suspect]
     Dosage: 5 MG, 2/D
     Dates: end: 20080605
  4. BENICAR [Concomitant]
     Dates: start: 20060201
  5. LANTUS [Concomitant]
     Dates: start: 20060201
  6. ASPIRIN [Concomitant]
     Dates: start: 20060201
  7. VYTORIN [Concomitant]
     Dates: start: 20060201
  8. RANEXA [Concomitant]
     Dates: start: 20060201
  9. COREG [Concomitant]
     Dates: start: 20060201
  10. PLAVIX [Concomitant]
     Dates: start: 20060201

REACTIONS (1)
  - PANCREATITIS [None]
